FAERS Safety Report 14683781 (Version 2)
Quarter: 2018Q2

REPORT INFORMATION
  Report Type: Spontaneous
  Country: PL (occurrence: PL)
  Receive Date: 20180327
  Receipt Date: 20180509
  Transmission Date: 20180711
  Serious: Yes (Other)
  Sender: FDA-Public Use
  Company Number: PL-BAYER-2017-247127

PATIENT
  Age: 69 Year
  Sex: Female
  Weight: 84 kg

DRUGS (16)
  1. TELMISARTAN [BAYER] [Suspect]
     Active Substance: TELMISARTAN
     Indication: HYPERTENSION
  2. ACETYLSALICYLIC ACID (} 100 MG) [Suspect]
     Active Substance: ASPIRIN
     Indication: HYPERTENSION
  3. LEVOTHYROXINE. [Concomitant]
     Active Substance: LEVOTHYROXINE
     Indication: HYPOTHYROIDISM
  4. METOPROLOL. [Suspect]
     Active Substance: METOPROLOL
     Indication: HYPERTENSION
  5. LERCANIDIPINE [Suspect]
     Active Substance: LERCANIDIPINE
     Indication: HYPERTENSION
  6. PERINDOPRIL [Suspect]
     Active Substance: PERINDOPRIL
     Indication: HYPERTENSION
  7. CILAZAPRIL [Suspect]
     Active Substance: CILAZAPRIL ANHYDROUS
     Indication: HYPERTENSION
  8. SIMVASTATIN. [Suspect]
     Active Substance: SIMVASTATIN
     Indication: HYPERTENSION
  9. CANDESARTAN. [Concomitant]
     Active Substance: CANDESARTAN
     Dosage: 4 MG, UNK
  10. PERINDOPRIL [Suspect]
     Active Substance: PERINDOPRIL
  11. AMLODIPINE [Suspect]
     Active Substance: AMLODIPINE BESYLATE
     Indication: HYPERTENSION
  12. RAMIPRIL. [Suspect]
     Active Substance: RAMIPRIL
     Indication: HYPERTENSION
  13. INDAPAMID [Suspect]
     Active Substance: INDAPAMIDE
     Indication: HYPERTENSION
  14. CLOPIDOGREL [Suspect]
     Active Substance: CLOPIDOGREL BISULFATE
     Dosage: 75 MG, UNK
  15. VALSARTAN. [Suspect]
     Active Substance: VALSARTAN
     Indication: HYPERTENSION
  16. CANDESARTAN. [Concomitant]
     Active Substance: CANDESARTAN

REACTIONS (14)
  - Drug intolerance [Recovered/Resolved]
  - Peripheral swelling [Recovered/Resolved]
  - Malaise [Unknown]
  - Labile hypertension [Recovered/Resolved]
  - Confusional state [Unknown]
  - Myalgia [Recovered/Resolved]
  - Chest pain [Recovered/Resolved]
  - Labelled drug-drug interaction medication error [None]
  - Tinnitus [Unknown]
  - Feeling abnormal [Recovered/Resolved]
  - Contraindicated product administered [None]
  - Cough [Recovered/Resolved]
  - Muscle spasms [Recovered/Resolved]
  - Thrombocytopenia [Unknown]
